FAERS Safety Report 18975143 (Version 2)
Quarter: 2021Q1

REPORT INFORMATION
  Report Type: Spontaneous
  Country: GT (occurrence: GT)
  Receive Date: 20210305
  Receipt Date: 20210309
  Transmission Date: 20210420
  Serious: Yes (Other)
  Sender: FDA-Public Use
  Company Number: GT-009507513-2103GTM001265

PATIENT
  Age: 55 Year
  Sex: Female

DRUGS (14)
  1. KEYTRUDA [Suspect]
     Active Substance: PEMBROLIZUMAB
     Indication: OESOPHAGEAL SQUAMOUS CELL CARCINOMA RECURRENT
     Dosage: 200 MG, BETWEEN 15 AND 21 DAYS DEPENDING ON THE PHYSICAL CONDITIONS OF THE PATIENT
     Route: 042
     Dates: start: 20210210
  2. HISTAPRIN (CAFFEINE (+) CHLORPHENIRAMINE MALEATE) [Concomitant]
     Indication: PREMEDICATION
     Dates: start: 20201204
  3. DEXAMETHASONE. [Concomitant]
     Active Substance: DEXAMETHASONE
     Indication: PREMEDICATION
     Dates: start: 20201204
  4. ONICIT [Concomitant]
     Active Substance: PALONOSETRON HYDROCHLORIDE
     Indication: PREMEDICATION
     Dosage: 1 VIAL
     Dates: start: 20201204
  5. ONICIT [Concomitant]
     Active Substance: PALONOSETRON HYDROCHLORIDE
     Dosage: UNK
     Dates: start: 20210210
  6. EPIRUBICIN [Concomitant]
     Active Substance: EPIRUBICIN
     Indication: OESOPHAGEAL SQUAMOUS CELL CARCINOMA
     Dosage: 50 MG
     Dates: start: 20201204
  7. CISPLATIN. [Concomitant]
     Active Substance: CISPLATIN
     Indication: OESOPHAGEAL SQUAMOUS CELL CARCINOMA
     Dosage: 60 MG
     Dates: start: 20201204
  8. FLUOROURACIL. [Concomitant]
     Active Substance: FLUOROURACIL
     Indication: OESOPHAGEAL SQUAMOUS CELL CARCINOMA RECURRENT
     Dates: start: 20201204
  9. NEXIUM I.V. [Concomitant]
     Active Substance: ESOMEPRAZOLE SODIUM
     Indication: PREMEDICATION
     Dates: start: 20201204
  10. LEUCOVORIN. [Concomitant]
     Active Substance: LEUCOVORIN
     Indication: PREMEDICATION
     Dosage: UNK
     Dates: start: 20201204
  11. NEXIUM I.V. [Concomitant]
     Active Substance: ESOMEPRAZOLE SODIUM
     Dosage: UNK
     Dates: start: 20210210
  12. FLUOROURACIL. [Concomitant]
     Active Substance: FLUOROURACIL
     Indication: OESOPHAGEAL SQUAMOUS CELL CARCINOMA
     Dosage: AT CONTINUOUS INFUSION
     Dates: start: 20210210
  13. HISTAPRIN (CAFFEINE (+) CHLORPHENIRAMINE MALEATE) [Concomitant]
     Dosage: UNK
     Dates: start: 20210210
  14. KYTRIL [Concomitant]
     Active Substance: GRANISETRON HYDROCHLORIDE
     Indication: PREMEDICATION
     Dosage: UNK
     Dates: start: 20201205

REACTIONS (8)
  - Anaemia [Unknown]
  - Off label use [Unknown]
  - Leukopenia [Unknown]
  - Nausea [Unknown]
  - Asthenia [Unknown]
  - Abdominal pain [Unknown]
  - Aphthous ulcer [Unknown]
  - Inappropriate schedule of product administration [Unknown]

NARRATIVE: CASE EVENT DATE: 20210210
